FAERS Safety Report 15340536 (Version 1)
Quarter: 2018Q3

REPORT INFORMATION
  Report Type: Spontaneous
  Country: US (occurrence: US)
  Receive Date: 20180831
  Receipt Date: 20180831
  Transmission Date: 20181010
  Serious: No
  Sender: FDA-Public Use
  Company Number: US-TEVA-2018-US-949639

PATIENT
  Sex: Male

DRUGS (1)
  1. TEMAZEPAM. [Suspect]
     Active Substance: TEMAZEPAM
     Indication: INSOMNIA
     Route: 065
     Dates: start: 20180626

REACTIONS (6)
  - Drug ineffective [Unknown]
  - Dyskinesia [Unknown]
  - Product storage error [Unknown]
  - Insomnia [Unknown]
  - Feeling abnormal [Unknown]
  - Wrong technique in product usage process [Unknown]
